FAERS Safety Report 7736995-8 (Version None)
Quarter: 2011Q3

REPORT INFORMATION
  Report Type: 
  Country: None (occurrence: None)
  Receive Date: 20110908
  Receipt Date: 20110825
  Transmission Date: 20111222
  Serious: Yes (Hospitalization, Other)
  Sender: FDA-Public Use
  Company Number: US-ELI_LILLY_AND_COMPANY-US201006006069

PATIENT
  Sex: Female
  Weight: 49.433 kg

DRUGS (19)
  1. NITROGLYCERIN [Concomitant]
     Dosage: UNK, AS NEEDED
  2. FORTEO [Suspect]
     Indication: OSTEOPOROSIS
     Dosage: 20 UG, DAILY (1/D)
     Route: 065
  3. PLAVIX [Concomitant]
     Dosage: UNK, DAILY (1/D)
  4. PRAVACHOL [Concomitant]
  5. FORTEO [Suspect]
     Dosage: 20 UG, QD
     Route: 065
  6. ASPIRIN [Concomitant]
     Dosage: 325 MG, DAILY (1/D)
  7. FERROUS SULFATE TAB [Concomitant]
  8. LEXAPRO [Concomitant]
  9. SYNTHROID [Concomitant]
     Dosage: UNK, DAILY (1/D)
  10. CARVEDILOL [Concomitant]
  11. FORTEO [Suspect]
     Dosage: 20 UG, DAILY (1/D)
     Route: 065
  12. FORTEO [Suspect]
     Dosage: 20 UG, QD
     Route: 065
  13. MYLANTA [Concomitant]
  14. MULTI-VITAMIN [Concomitant]
     Dosage: UNK, DAILY (1/D)
  15. FORTEO [Suspect]
     Dosage: 20 UG, DAILY (1/D)
     Route: 065
  16. VITAMIN D [Concomitant]
     Dosage: UNK, 2/D
  17. CALCIUM CARBONATE [Concomitant]
     Dosage: UNK, 2/D
  18. SUCRALFATE [Concomitant]
     Dosage: UNK, DAILY (1/D)
  19. FORTEO [Suspect]
     Dosage: 20 UG, QD
     Route: 065

REACTIONS (15)
  - DIARRHOEA [None]
  - INJECTION SITE HAEMATOMA [None]
  - INJECTION SITE PAIN [None]
  - MYOCARDIAL INFARCTION [None]
  - LIMB INJURY [None]
  - GASTROOESOPHAGEAL REFLUX DISEASE [None]
  - CONSTIPATION [None]
  - DYSPEPSIA [None]
  - CORONARY ARTERY DISEASE [None]
  - CONTUSION [None]
  - CYSTITIS [None]
  - MUSCLE SPASMS [None]
  - PAIN IN EXTREMITY [None]
  - FATIGUE [None]
  - DIZZINESS [None]
